FAERS Safety Report 4475261-3 (Version None)
Quarter: 2004Q4

REPORT INFORMATION
  Report Type: 
  Country: None (occurrence: None)
  Receive Date: 20041015
  Receipt Date: 20041007
  Transmission Date: 20050328
  Serious: Yes (Death)
  Sender: FDA-Public Use
  Company Number: JP-JNJFOC-20041002835

PATIENT
  Sex: Male

DRUGS (2)
  1. RISPERDAL [Suspect]
     Indication: SCHIZOPHRENIA
     Route: 049
     Dates: start: 20040809, end: 20040930
  2. CHLORPROMAZINE HIBENZATE [Concomitant]
     Indication: SCHIZOPHRENIA
     Route: 049
     Dates: start: 20040909, end: 20040920

REACTIONS (2)
  - ACUTE RESPIRATORY FAILURE [None]
  - PNEUMONIA [None]
